FAERS Safety Report 23900301 (Version 1)
Quarter: 2024Q2

REPORT INFORMATION
  Report Type: Spontaneous
  Country: US (occurrence: None)
  Receive Date: 20240526
  Receipt Date: 20240526
  Transmission Date: 20240715
  Serious: No
  Sender: FDA-Public Use
  Company Number: US-ROCHE-3344836

PATIENT

DRUGS (1)
  1. OCREVUS [Suspect]
     Active Substance: OCRELIZUMAB
     Indication: Multiple sclerosis
     Dosage: RECEIVED THIRD FULL DOSE
     Route: 041

REACTIONS (3)
  - Pruritus [Unknown]
  - Pharyngeal paraesthesia [Unknown]
  - Paraesthesia [Unknown]
